FAERS Safety Report 24860230 (Version 1)
Quarter: 2025Q1

REPORT INFORMATION
  Report Type: Spontaneous
  Country: US (occurrence: US)
  Receive Date: 20250120
  Receipt Date: 20250120
  Transmission Date: 20250409
  Serious: No
  Sender: ROCHE
  Company Number: US-ROCHE-10000184448

PATIENT
  Sex: Male

DRUGS (19)
  1. XOLAIR PFS [Suspect]
     Active Substance: OMALIZUMAB
     Indication: Asthma
     Route: 058
  2. XOLAIR PFS [Suspect]
     Active Substance: OMALIZUMAB
  3. ALBUTEROL [Concomitant]
     Active Substance: ALBUTEROL
  4. AZlTHROMYCiN [Concomitant]
  5. CETIRIZENE [Concomitant]
  6. OOXAZOSIN [Concomitant]
  7. FERROUS SULFATE [Concomitant]
     Active Substance: FERROUS SULFATE
  8. GUAlFENESlN [Concomitant]
  9. HYDROXYZINE [Concomitant]
     Active Substance: HYDROXYZINE HYDROCHLORIDE
  10. METAMUCIL [Concomitant]
     Active Substance: PLANTAGO SEED
  11. MIRTAZAPINE [Concomitant]
     Active Substance: MIRTAZAPINE
  12. NICOTINE [Concomitant]
     Active Substance: NICOTINE
  13. OCUVITE [Concomitant]
     Active Substance: VITAMINS
  14. POTASSIUM [Concomitant]
     Active Substance: POTASSIUM
  15. MINERALS\VITAMINS [Concomitant]
     Active Substance: MINERALS\VITAMINS
  16. SINGULAIR [Concomitant]
     Active Substance: MONTELUKAST SODIUM
  17. SPIRIVA [Concomitant]
     Active Substance: TIOTROPIUM BROMIDE MONOHYDRATE
  18. SYMBICORT [Concomitant]
     Active Substance: BUDESONIDE\FORMOTEROL FUMARATE DIHYDRATE
  19. XYLITOL [Concomitant]
     Active Substance: XYLITOL

REACTIONS (3)
  - Bronchitis [Not Recovered/Not Resolved]
  - Nasal congestion [Not Recovered/Not Resolved]
  - Off label use [Unknown]
